FAERS Safety Report 8538023-3 (Version None)
Quarter: 2012Q3

REPORT INFORMATION
  Report Type: 
  Country: None (occurrence: None)
  Receive Date: 20120725
  Receipt Date: 20120723
  Transmission Date: 20120928
  Serious: Yes (Hospitalization)
  Sender: FDA-Public Use
  Company Number: FR-ROCHE-1063646

PATIENT
  Sex: Female
  Weight: 75 kg

DRUGS (5)
  1. EPREX [Concomitant]
     Indication: ANAEMIA
     Dosage: DOSE: 4000 IU/WEEK
     Route: 065
  2. CYTARABINE [Suspect]
     Indication: MANTLE CELL LYMPHOMA
     Dosage: 7.4 G/CYCLE BETWEEN 03/APR/2012 AND 04/APR/2012
     Route: 065
     Dates: start: 20120403
  3. CISPLATIN [Suspect]
     Indication: MANTLE CELL LYMPHOMA
     Dosage: 184 MG/CYCLE ON 03/APR/2012
     Route: 065
     Dates: start: 20120403
  4. MABTHERA [Suspect]
     Indication: MANTLE CELL LYMPHOMA
     Dosage: 700 MG/CYCLE ON 05/APR/2012 (NORMALLY ON D4= 06/APR/2012 FOR CYCLE 1)
     Route: 041
     Dates: start: 20120405
  5. INNOHEP [Concomitant]
     Indication: PULMONARY EMBOLISM
     Route: 065
     Dates: start: 20120403

REACTIONS (2)
  - BONE MARROW FAILURE [None]
  - PNEUMONIA [None]
